FAERS Safety Report 11956328 (Version 1)
Quarter: 2016Q1

REPORT INFORMATION
  Report Type: Report from Study
  Country: US (occurrence: US)
  Receive Date: 20160126
  Receipt Date: 20160126
  Transmission Date: 20160526
  Serious: No
  Sender: FDA-Public Use
  Company Number: US-ABBVIE-15K-163-1363104-00

PATIENT
  Age: 32 Year
  Sex: Female

DRUGS (1)
  1. HUMIRA [Suspect]
     Active Substance: ADALIMUMAB
     Indication: RHEUMATOID ARTHRITIS
     Route: 058
     Dates: start: 20141101

REACTIONS (5)
  - Fall [Unknown]
  - Contusion [Unknown]
  - Nasopharyngitis [Unknown]
  - Anxiety [Unknown]
  - Sinusitis [Unknown]

NARRATIVE: CASE EVENT DATE: 20150313
